FAERS Safety Report 5167874-0 (Version None)
Quarter: 2006Q4

REPORT INFORMATION
  Report Type: 
  Country: None (occurrence: None)
  Receive Date: 20061208
  Receipt Date: 20060919
  Transmission Date: 20070319
  Serious: Yes (Other)
  Sender: FDA-Public Use
  Company Number: PHEH2006US12081

PATIENT
  Age: 82 Year
  Sex: Female

DRUGS (1)
  1. METOPROLOL SUCCINATE [Suspect]

REACTIONS (1)
  - CARDIAC FIBRILLATION [None]
